FAERS Safety Report 8835425 (Version 1)
Quarter: 2012Q4

REPORT INFORMATION
  Report Type: Report from Study
  Country: FR (occurrence: FR)
  Receive Date: 20121011
  Receipt Date: 20121011
  Transmission Date: 20130627
  Serious: Yes (Hospitalization)
  Sender: FDA-Public Use
  Company Number: FR-ROCHE-1142462

PATIENT
  Sex: Female
  Weight: 70 kg

DRUGS (2)
  1. AVASTIN [Suspect]
     Indication: ANGIOSARCOMA METASTATIC
     Dosage: last dose of drug given 730 mg
     Route: 042
     Dates: start: 20120425, end: 20120817
  2. PACLITAXEL [Suspect]
     Indication: ANGIOSARCOMA METASTATIC
     Dosage: last dose of drug given 165.94 mg
     Route: 042
     Dates: start: 20120125, end: 20120924

REACTIONS (3)
  - Dyspnoea [Recovered/Resolved with Sequelae]
  - Ascites [Unknown]
  - Pleural effusion [Unknown]
